FAERS Safety Report 25528734 (Version 3)
Quarter: 2025Q3

REPORT INFORMATION
  Report Type: Report from Study
  Country: US (occurrence: US)
  Receive Date: 20250708
  Receipt Date: 20250812
  Transmission Date: 20251021
  Serious: No
  Sender: ABBVIE
  Company Number: US-ABBVIE-6357677

PATIENT
  Age: 81 Year
  Sex: Male
  Weight: 70 kg

DRUGS (5)
  1. VYALEV [Suspect]
     Active Substance: FOSCARBIDOPA\FOSLEVODOPA
     Indication: Parkinson^s disease
     Route: 058
     Dates: start: 20250613
  2. VYALEV [Suspect]
     Active Substance: FOSCARBIDOPA\FOSLEVODOPA
     Route: 058
  3. FLOMAX [Suspect]
     Active Substance: TAMSULOSIN HYDROCHLORIDE
     Indication: Product used for unknown indication
     Route: 065
  4. GOCOVRI [Concomitant]
     Active Substance: AMANTADINE
     Indication: Product used for unknown indication
  5. STALEVO [Concomitant]
     Active Substance: CARBIDOPA\ENTACAPONE\LEVODOPA
     Indication: Product used for unknown indication

REACTIONS (12)
  - Dysuria [Not Recovered/Not Resolved]
  - Catheter site related reaction [Recovering/Resolving]
  - Presyncope [Recovered/Resolved]
  - Urinary tract infection [Recovered/Resolved]
  - Dyskinesia [Recovered/Resolved]
  - Pallor [Recovered/Resolved]
  - Hallucination [Not Recovered/Not Resolved]
  - Hypotension [Recovered/Resolved]
  - Dysuria [Recovered/Resolved]
  - Intentional product use issue [Unknown]
  - Catheter site pain [Recovering/Resolving]
  - Catheter site haemorrhage [Recovering/Resolving]

NARRATIVE: CASE EVENT DATE: 20250101
